FAERS Safety Report 19011328 (Version 1)
Quarter: 2021Q1

REPORT INFORMATION
  Report Type: Spontaneous
  Country: FR (occurrence: FR)
  Receive Date: 20210316
  Receipt Date: 20210316
  Transmission Date: 20210420
  Serious: Yes (Other)
  Sender: FDA-Public Use
  Company Number: FR-ALKEM LABORATORIES LIMITED-FR-ALKEM-2021-01225

PATIENT
  Age: 70 Year
  Sex: Male

DRUGS (3)
  1. LINEZOLID. [Suspect]
     Active Substance: LINEZOLID
     Indication: INFECTION
     Dosage: UNK
     Route: 065
     Dates: start: 2020
  2. OFLOXACIN. [Concomitant]
     Active Substance: OFLOXACIN
     Indication: INFECTION
     Dosage: UNK
     Route: 065
     Dates: start: 2020
  3. EMTRICITABINE, TENOFOVIR ALAFENAMIDE, RILPIVIRINE [Concomitant]
     Indication: HIV INFECTION
     Dosage: UNK
     Route: 065

REACTIONS (3)
  - Sideroblastic anaemia [Recovered/Resolved]
  - Red blood cell vacuolisation [Recovered/Resolved]
  - Thrombocytopenia [Recovered/Resolved]
